FAERS Safety Report 24138409 (Version 1)
Quarter: 2024Q3

REPORT INFORMATION
  Report Type: Spontaneous
  Country: HR (occurrence: HR)
  Receive Date: 20240725
  Receipt Date: 20240725
  Transmission Date: 20241017
  Serious: Yes (Other)
  Sender: MYLAN
  Company Number: None

PATIENT
  Age: 42 Year
  Sex: Female

DRUGS (3)
  1. PREGABALIN [Suspect]
     Active Substance: PREGABALIN
     Indication: Product used for unknown indication
     Dosage: 250 MILLIGRAM, QD (10 CAPSULES OF PREGABALIN 25 MG)
     Route: 048
     Dates: start: 20240629, end: 20240629
  2. QUETIAPINE [Suspect]
     Active Substance: QUETIAPINE
     Indication: Product used for unknown indication
     Dosage: 1000 MILLIGRAM, QD (10 TABLETS OF QUETIAPINE 100 MG)
     Route: 048
     Dates: start: 20240629, end: 20240629
  3. NAPROXEN SODIUM [Suspect]
     Active Substance: NAPROXEN\NAPROXEN SODIUM
     Indication: Product used for unknown indication
     Dosage: 8 DOSAGE FORM, QD (1 DF IS EQUAL TO 1 TABLET)
     Route: 048
     Dates: start: 20240629, end: 20240629

REACTIONS (5)
  - Oxygen saturation decreased [Unknown]
  - Suicide attempt [Unknown]
  - Somnolence [Unknown]
  - Blood pressure decreased [Unknown]
  - Intentional overdose [Unknown]

NARRATIVE: CASE EVENT DATE: 20240629
